FAERS Safety Report 7898973-8 (Version None)
Quarter: 2011Q4

REPORT INFORMATION
  Report Type: 
  Country: None (occurrence: None)
  Receive Date: 20111107
  Receipt Date: 20111021
  Transmission Date: 20120403
  Serious: Yes (Other)
  Sender: FDA-Public Use
  Company Number: PHHY2011JP91218

PATIENT
  Age: 42 Year
  Sex: Female

DRUGS (2)
  1. INFLIXIMAB [Suspect]
     Dosage: 5 MG/KG
  2. CYCLOSPORINE [Suspect]
     Indication: PSORIASIS
     Dosage: 2-5 MG/KG/DAY
     Route: 048

REACTIONS (7)
  - ERYTHEMA [None]
  - ARTHRALGIA [None]
  - BLISTER [None]
  - RENAL IMPAIRMENT [None]
  - SUBCORNEAL PUSTULAR DERMATOSIS [None]
  - RASH [None]
  - GAIT DISTURBANCE [None]
